FAERS Safety Report 24842627 (Version 2)
Quarter: 2025Q3

REPORT INFORMATION
  Report Type: Spontaneous
  Country: US (occurrence: US)
  Receive Date: 20250115
  Receipt Date: 20250810
  Transmission Date: 20251020
  Serious: No
  Sender: ALEXION PHARMACEUTICALS
  Company Number: US-AstraZeneca-CH-00783895AP

PATIENT
  Sex: Male

DRUGS (1)
  1. WAINUA [Suspect]
     Active Substance: EPLONTERSEN
     Route: 065

REACTIONS (4)
  - Injection site injury [Unknown]
  - Asthenia [Unknown]
  - Incorrect dose administered [Unknown]
  - Device use issue [Unknown]
